FAERS Safety Report 13860695 (Version 1)
Quarter: 2017Q3

REPORT INFORMATION
  Report Type: Spontaneous
  Country: US (occurrence: US)
  Receive Date: 20170811
  Receipt Date: 20170811
  Transmission Date: 20171127
  Serious: No
  Sender: FDA-Public Use
  Company Number: None

PATIENT
  Age: 71 Year
  Sex: Female

DRUGS (1)
  1. ENBREL [Suspect]
     Active Substance: ETANERCEPT
     Indication: PSORIASIS
     Route: 058
     Dates: start: 20161108

REACTIONS (4)
  - Diabetes mellitus [None]
  - Arthropathy [None]
  - Back disorder [None]
  - Weight increased [None]

NARRATIVE: CASE EVENT DATE: 20170809
